FAERS Safety Report 7522983-3 (Version None)
Quarter: 2011Q2

REPORT INFORMATION
  Report Type: 
  Country: None (occurrence: None)
  Receive Date: 20110603
  Receipt Date: 20110520
  Transmission Date: 20111010
  Serious: Yes (Hospitalization)
  Sender: FDA-Public Use
  Company Number: CA-JNJFOC-20110511378

PATIENT
  Sex: Female

DRUGS (6)
  1. REMICADE [Suspect]
     Indication: COLITIS ULCERATIVE
     Route: 042
     Dates: start: 20090101
  2. PREDNISONE [Concomitant]
     Route: 065
  3. ESCITALOPRAM [Concomitant]
     Route: 065
  4. PANTOPRAZOLE [Concomitant]
     Route: 065
  5. SYNTHROID [Concomitant]
     Route: 065
  6. OXAZEPAM [Concomitant]
     Route: 065

REACTIONS (5)
  - PERICARDIAL EFFUSION [None]
  - LUPUS-LIKE SYNDROME [None]
  - PLEURITIC PAIN [None]
  - ARTHRALGIA [None]
  - PLEURAL EFFUSION [None]
